FAERS Safety Report 9814444 (Version 2)
Quarter: 2014Q1

REPORT INFORMATION
  Report Type: Report from Study
  Country: CL (occurrence: CL)
  Receive Date: 20140113
  Receipt Date: 20140116
  Transmission Date: 20141002
  Serious: Yes (Other)
  Sender: FDA-Public Use
  Company Number: PHHY2014CL003306

PATIENT
  Age: 73 Year
  Sex: Female

DRUGS (4)
  1. TAREG D [Suspect]
     Indication: HYPERTENSION
     Dosage: 1.5 DF (160/12.5 MG), DAILY (I IN THE MORNING AND HALFT IN AFTERNOON)
     Route: 048
     Dates: start: 1996
  2. TAREG [Suspect]
     Indication: HYPERTENSION
     Dosage: 80 MG, DAILY
     Route: 048
     Dates: start: 1998
  3. ATENOLOL [Concomitant]
     Indication: TACHYCARDIA
  4. KITADOL [Concomitant]
     Indication: HEADACHE

REACTIONS (5)
  - Aortic aneurysm [Not Recovered/Not Resolved]
  - Diabetes mellitus [Not Recovered/Not Resolved]
  - Renal hypoplasia [Not Recovered/Not Resolved]
  - Urinary tract infection [Not Recovered/Not Resolved]
  - Wrong technique in drug usage process [Not Recovered/Not Resolved]
